FAERS Safety Report 6938143-0 (Version None)
Quarter: 2010Q3

REPORT INFORMATION
  Report Type: 
  Country: None (occurrence: None)
  Receive Date: 20100824
  Receipt Date: 20100811
  Transmission Date: 20110219
  Serious: Yes (Other)
  Sender: FDA-Public Use
  Company Number: PHHY2010DE01361

PATIENT
  Sex: Female
  Weight: 60 kg

DRUGS (2)
  1. CGS 20267 T30748+ [Suspect]
     Indication: BREAST CANCER
     Dosage: 2.5 MG DAILY
     Route: 048
     Dates: start: 20090613
  2. OMEP [Concomitant]
     Dosage: UNK
     Dates: start: 20030101

REACTIONS (5)
  - ARTHRALGIA [None]
  - EYE HAEMORRHAGE [None]
  - GAMMA-GLUTAMYLTRANSFERASE INCREASED [None]
  - HOT FLUSH [None]
  - MUSCULAR WEAKNESS [None]
